FAERS Safety Report 19008817 (Version 1)
Quarter: 2021Q1

REPORT INFORMATION
  Report Type: Spontaneous
  Country: US (occurrence: US)
  Receive Date: 20210316
  Receipt Date: 20210316
  Transmission Date: 20210420
  Serious: Yes (Other)
  Sender: FDA-Public Use
  Company Number: US-AMGEN-USASP2021037336

PATIENT

DRUGS (8)
  1. LENALIDOMIDE [Suspect]
     Active Substance: LENALIDOMIDE
     Dosage: 10 MILLIGRAM, QD, FOR THREE WEEKS
     Route: 065
  2. DARATUMUMAB [Suspect]
     Active Substance: DARATUMUMAB
     Indication: PLASMA CELL MYELOMA
     Dosage: UNK (WEEKLY FOR 8 DOSES, EVERY OTHER WEEK FOR 16 WEEKS)
     Route: 065
  3. DARATUMUMAB [Suspect]
     Active Substance: DARATUMUMAB
     Dosage: UNK (DAY 1 EVERY OTHER CYCLE) OF A 4?WEEK CYCLE
     Route: 065
  4. LENALIDOMIDE [Suspect]
     Active Substance: LENALIDOMIDE
     Indication: PLASMA CELL MYELOMA
     Dosage: 25 MILLIGRAM, QD, FOR THREE WEEKS
     Route: 065
  5. DEXAMETHASONE. [Suspect]
     Active Substance: DEXAMETHASONE
     Indication: PLASMA CELL MYELOMA
     Dosage: 40 MILLIGRAM, QWK IN 4 WEEK CYCLES FOR 6 CYCLES
     Route: 065
  6. CARFILZOMIB [Suspect]
     Active Substance: CARFILZOMIB
     Indication: PLASMA CELL MYELOMA
     Dosage: UNK (36 MG/M2 TWICE WEEKLY OR AS PER UPDATED PROTOCOL 56MG/M2 WEEKLY FOR 2 WEEKS)
     Route: 065
  7. DARATUMUMAB [Suspect]
     Active Substance: DARATUMUMAB
     Dosage: UNK (EVERY 4 WEEKS FOR 8 DOSES, EVERY OTHER WEEK FOR 16 WEEKS)
     Route: 065
  8. DEXAMETHASONE. [Suspect]
     Active Substance: DEXAMETHASONE
     Dosage: 20 MILLIGRAM, QWK IN 4 WEEK CYCLES FOR 6 CYCLES
     Route: 065

REACTIONS (41)
  - Flushing [Unknown]
  - Insomnia [Unknown]
  - Dizziness [Unknown]
  - White blood cell count decreased [Unknown]
  - Anaemia [Unknown]
  - Pyrexia [Unknown]
  - Dyspnoea [Unknown]
  - Chills [Unknown]
  - Platelet count decreased [Unknown]
  - Diarrhoea [Unknown]
  - Skin infection [Unknown]
  - Rash maculo-papular [Unknown]
  - Upper respiratory tract infection [Unknown]
  - Fatigue [Unknown]
  - Tremor [Unknown]
  - Constipation [Unknown]
  - Embolism [Unknown]
  - Pneumonia [Unknown]
  - Infusion related reaction [Unknown]
  - Taste disorder [Unknown]
  - Rash [Unknown]
  - Lymphocyte count decreased [Unknown]
  - Hypersensitivity [Unknown]
  - Hypertension [Unknown]
  - Abdominal distension [Unknown]
  - Malaise [Unknown]
  - Blood bilirubin increased [Unknown]
  - Vision blurred [Unknown]
  - Peripheral sensory neuropathy [Unknown]
  - Myalgia [Unknown]
  - Headache [Unknown]
  - Muscular weakness [Unknown]
  - Muscle spasms [Unknown]
  - Neutropenia [Unknown]
  - Night sweats [Unknown]
  - Oedema [Unknown]
  - Blood alkaline phosphatase increased [Unknown]
  - Pruritus [Unknown]
  - Nausea [Unknown]
  - Hyperglycaemia [Unknown]
  - Cough [Unknown]
